FAERS Safety Report 8912257 (Version 1)
Quarter: 2012Q4

REPORT INFORMATION
  Report Type: 
  Country: SE (occurrence: SE)
  Receive Date: 20121115
  Receipt Date: 20121115
  Transmission Date: 20130627
  Serious: Yes (Hospitalization)
  Sender: FDA-Public Use
  Company Number: SE-PFIZER INC-2012281189

PATIENT
  Age: 74 Year
  Sex: Male
  Weight: 79.7 kg

DRUGS (4)
  1. GENOTROPIN [Suspect]
     Dosage: 0.1 mg, 1x/day, 7 injections/week
     Route: 058
     Dates: start: 20100922
  2. TESTOSTERONE [Concomitant]
     Indication: LUTEINISING HORMONE DEFICIENCY
     Dosage: UNK
     Dates: start: 20090924
  3. TESTOSTERONE [Concomitant]
     Indication: FOLLICLE-STIMULATING HORMONE DEFICIENCY
  4. TESTOSTERONE [Concomitant]
     Indication: TESTICULAR HYPOGONADISM

REACTIONS (1)
  - Cardiac disorder [Unknown]
